FAERS Safety Report 9630193 (Version 1)
Quarter: 2013Q4

REPORT INFORMATION
  Report Type: Spontaneous
  Country: US (occurrence: US)
  Receive Date: 20131017
  Receipt Date: 20131017
  Transmission Date: 20140711
  Serious: Yes (Hospitalization)
  Sender: FDA-Public Use
  Company Number: US-B.I. PHARMACEUTICALS,INC./RIDGEFIELD-2013-BI-32458BP

PATIENT
  Age: 62 Year
  Sex: Male
  Weight: 70 kg

DRUGS (5)
  1. SPIRIVA [Suspect]
     Indication: INTERSTITIAL LUNG DISEASE
     Dosage: 18 MCG
     Route: 055
     Dates: start: 2009
  2. ADVAIR [Concomitant]
     Dosage: STRENGTH: 500/50; DAILY DOSE: 1000/100
     Route: 055
  3. PREDNISONE [Concomitant]
     Dosage: 7.5 MG
     Route: 048
  4. ALBUTEROL [Concomitant]
     Route: 055
  5. PRO AIR [Concomitant]
     Route: 055

REACTIONS (2)
  - Idiopathic pulmonary fibrosis [Not Recovered/Not Resolved]
  - Off label use [Not Recovered/Not Resolved]
